FAERS Safety Report 6648567-7 (Version None)
Quarter: 2010Q1

REPORT INFORMATION
  Report Type: 
  Country: None (occurrence: None)
  Receive Date: 20100319
  Receipt Date: 20100308
  Transmission Date: 20100710
  Serious: Yes (Other)
  Sender: FDA-Public Use
  Company Number: 234934J09USA

PATIENT
  Age: 46 Year
  Sex: Male
  Weight: 80 kg

DRUGS (8)
  1. REBIF [Suspect]
     Indication: MULTIPLE SCLEROSIS
     Dosage: 44 MCG, 3 IN 1 WEEKS, SUBCUTANEOUS
     Route: 058
     Dates: start: 20081204
  2. LISINOPRIL [Concomitant]
  3. AMLODIPINE [Concomitant]
  4. TRIAMTERENE (TRIAMTERENE) [Concomitant]
  5. VITAMIN B12 (CYAN000BALAMIN) [Concomitant]
  6. SIMVASTATIN [Concomitant]
  7. BABY ASPIRIN (ACETYLSALTCYLIC ACID) [Concomitant]
  8. BACLOFEN [Concomitant]

REACTIONS (1)
  - TYPE 2 DIABETES MELLITUS [None]
